FAERS Safety Report 26052888 (Version 1)
Quarter: 2025Q4

REPORT INFORMATION
  Report Type: Spontaneous
  Country: US (occurrence: None)
  Receive Date: 20251115
  Receipt Date: 20251115
  Transmission Date: 20260118
  Serious: Yes (Other)
  Sender: FDA-CTU
  Company Number: None

PATIENT
  Age: 44 Year
  Sex: Female
  Weight: 60.75 kg

DRUGS (4)
  1. CIPROFLOXACIN [Suspect]
     Active Substance: CIPROFLOXACIN
  2. DULOXETINE [Suspect]
     Active Substance: DULOXETINE
  3. HYDROXYZINE [Suspect]
     Active Substance: HYDROXYZINE HYDROCHLORIDE
  4. DULOXETENE HYDROXIDE [Concomitant]

REACTIONS (8)
  - Anxiety [None]
  - Hyperhidrosis [None]
  - Confusional state [None]
  - Gait disturbance [None]
  - Tremor [None]
  - Palpitations [None]
  - Panic reaction [None]
  - Memory impairment [None]

NARRATIVE: CASE EVENT DATE: 20251108
